FAERS Safety Report 25163019 (Version 1)
Quarter: 2025Q2

REPORT INFORMATION
  Report Type: Spontaneous
  Country: US (occurrence: US)
  Receive Date: 20250404
  Receipt Date: 20250404
  Transmission Date: 20250716
  Serious: No
  Sender: Kenvue
  Company Number: US-KENVUE-20250301919

PATIENT
  Sex: Female

DRUGS (1)
  1. MENS ROGAINE EXTRA STRENGTH [Suspect]
     Active Substance: MINOXIDIL
     Indication: Product used for unknown indication
     Dosage: DROPPER FULL, EVERY OTHER DAY
     Route: 061
     Dates: start: 2015

REACTIONS (2)
  - Application site scab [Unknown]
  - Off label use [Unknown]

NARRATIVE: CASE EVENT DATE: 20150101
